FAERS Safety Report 22302796 (Version 4)
Quarter: 2023Q4

REPORT INFORMATION
  Report Type: Report from Study
  Country: US (occurrence: None)
  Receive Date: 20230510
  Receipt Date: 20231005
  Transmission Date: 20240110
  Serious: Yes (Hospitalization)
  Sender: FDA-Public Use
  Company Number: US-ROCHE-3341472

PATIENT
  Age: 65 Year
  Sex: Female

DRUGS (9)
  1. ATEZOLIZUMAB [Suspect]
     Active Substance: ATEZOLIZUMAB
     Indication: Pancreatic carcinoma
     Dosage: MOST RECENT DOSE ADMINISTERED WAS ON 22/FEB/2023. TOTAL NUMBER OR INJECTIONS GIVEN WAS 8?CUMULATIVE
     Route: 041
     Dates: start: 20220808
  2. GEMCITABINE [Concomitant]
     Active Substance: GEMCITABINE
     Dosage: (CYCLE 8)
     Dates: start: 20220808, end: 20230308
  3. GEMCITABINE [Concomitant]
     Active Substance: GEMCITABINE
     Dosage: (CYCLE 8)
     Dates: start: 20230308
  4. PACLITAXEL [Concomitant]
     Active Substance: PACLITAXEL
     Dates: start: 20220808, end: 20230308
  5. PACLITAXEL [Concomitant]
     Active Substance: PACLITAXEL
     Dates: start: 20230308
  6. FUROSEMIDE [Concomitant]
     Active Substance: FUROSEMIDE
     Dates: start: 20230220
  7. FUROSEMIDE [Concomitant]
     Active Substance: FUROSEMIDE
     Dates: start: 20230406
  8. SPIRONOLACTONE [Concomitant]
     Active Substance: SPIRONOLACTONE
     Dates: start: 20230220
  9. POTASSIUM CHLORIDE [Concomitant]
     Active Substance: POTASSIUM CHLORIDE

REACTIONS (2)
  - Glomerulonephritis membranoproliferative [Not Recovered/Not Resolved]
  - Transfusion-related acute lung injury [Recovered/Resolved]

NARRATIVE: CASE EVENT DATE: 20230421
